FAERS Safety Report 17802492 (Version 1)
Quarter: 2020Q2

REPORT INFORMATION
  Report Type: Spontaneous
  Country: US (occurrence: US)
  Receive Date: 20200518
  Receipt Date: 20200518
  Transmission Date: 20200714
  Serious: Yes (Other)
  Sender: FDA-Public Use
  Company Number: None

PATIENT

DRUGS (2)
  1. BBRAUN PAB CONTAINER 38004-5264 AND CODAN UNIVER [Suspect]
     Active Substance: DEVICE
  2. MITOMYCIN. [Suspect]
     Active Substance: MITOMYCIN

REACTIONS (1)
  - Wrong technique in product usage process [None]

NARRATIVE: CASE EVENT DATE: 20200507
